FAERS Safety Report 6258841-4 (Version None)
Quarter: 2009Q3

REPORT INFORMATION
  Report Type: 
  Country: None (occurrence: None)
  Receive Date: 20090707
  Receipt Date: 20090630
  Transmission Date: 20100115
  Serious: No
  Sender: FDA-Public Use
  Company Number: US-B.I. PHARMACEUTICALS,INC./RIDGEFIELD-2009-BP-07314BP

PATIENT
  Age: 83 Year
  Weight: 89.9 kg

DRUGS (3)
  1. SPIRIVA [Suspect]
  2. NIFEDIPINE [Concomitant]
  3. LOSARTAN POTASSIUM [Concomitant]
     Dosage: 100 MG

REACTIONS (1)
  - JOINT SWELLING [None]
